FAERS Safety Report 9331399 (Version 1)
Quarter: 2013Q2

REPORT INFORMATION
  Report Type: Report from Study
  Country: AR (occurrence: AR)
  Receive Date: 20130605
  Receipt Date: 20130605
  Transmission Date: 20140414
  Serious: Yes (Other)
  Sender: FDA-Public Use
  Company Number: PHHY2013AR056952

PATIENT
  Sex: Female

DRUGS (1)
  1. DIOVAN D [Suspect]
     Indication: HYPERTENSION
     Dosage: 1 DF(320/12.5MG), DAILY
     Route: 048

REACTIONS (3)
  - Osteoarthritis [Recovering/Resolving]
  - Bone pain [Recovering/Resolving]
  - Influenza [Recovering/Resolving]
